FAERS Safety Report 4580406-0 (Version None)
Quarter: 2005Q1

REPORT INFORMATION
  Report Type: 
  Country: None (occurrence: None)
  Receive Date: 20050214
  Receipt Date: 20040116
  Transmission Date: 20050727
  Serious: No
  Sender: FDA-Public Use
  Company Number: US-GLAXOSMITHKLINE-A0493567A

PATIENT
  Sex: Female

DRUGS (7)
  1. LAMICTAL [Suspect]
     Indication: EPILEPSY
     Route: 048
  2. ZELNORM [Concomitant]
  3. BUTALBITAL [Concomitant]
  4. TEMAZEPAM [Concomitant]
  5. SYNTHROID [Concomitant]
  6. PAMELOR [Concomitant]
  7. AMITRIPTYLINE [Concomitant]

REACTIONS (1)
  - DYSGEUSIA [None]
